FAERS Safety Report 10034870 (Version 1)
Quarter: 2014Q1

REPORT INFORMATION
  Report Type: Spontaneous
  Country: US (occurrence: None)
  Receive Date: 20140306
  Receipt Date: 20140306
  Transmission Date: 20141002
  Serious: Yes (Other)
  Sender: FDA-Public Use
  Company Number: 163-21880-13105617

PATIENT
  Age: 60 Year
  Sex: Male
  Weight: 99.3 kg

DRUGS (10)
  1. REVLIMID (LENALIDOMIDE) (25 MILLIGRAM, CAPSULES) [Suspect]
     Indication: PLASMA CELL MYELOMA
     Route: 048
     Dates: start: 201307
  2. CRESTOR (ROSUVASTATIN CALCIUM) [Suspect]
     Indication: PRODUCT USED FOR UNKNOWN INDICATION
     Dates: start: 2013
  3. AMBIEN (ZOLPIDEM TARTRATE) [Suspect]
  4. DEXAMETHASONE [Concomitant]
  5. NORVASC (AMLODIPINE BESILATE) [Concomitant]
  6. TRICOR (FENOFIBRATE) [Concomitant]
  7. ATENOLOL (ATENOLOL) [Concomitant]
  8. FENTANYL [Concomitant]
  9. ASA (ACETYLSALICYLIC ACID) [Concomitant]
  10. ALPRAZOLAM [Concomitant]

REACTIONS (4)
  - Hepatic enzyme increased [None]
  - Blood glucose increased [None]
  - Local swelling [None]
  - Increased appetite [None]
